FAERS Safety Report 7095801-8 (Version None)
Quarter: 2010Q4

REPORT INFORMATION
  Report Type: 
  Country: None (occurrence: None)
  Receive Date: 20101102
  Receipt Date: 20101025
  Transmission Date: 20110411
  Serious: Yes (Other)
  Sender: FDA-Public Use
  Company Number: 2010SP056731

PATIENT
  Sex: Male

DRUGS (1)
  1. ORGARAN [Suspect]
     Indication: ANTICOAGULANT THERAPY
     Dates: start: 20100801

REACTIONS (2)
  - MUSCLE SPASMS [None]
  - RESPIRATORY FAILURE [None]
